FAERS Safety Report 10066136 (Version 1)
Quarter: 2014Q2

REPORT INFORMATION
  Report Type: Spontaneous
  Country: US (occurrence: US)
  Receive Date: 20140408
  Receipt Date: 20140408
  Transmission Date: 20141212
  Serious: No
  Sender: FDA-Public Use
  Company Number: US-PFIZER INC-2014096710

PATIENT
  Age: 3 Year
  Sex: Male
  Weight: 15.87 kg

DRUGS (2)
  1. JUNIOR STRENGTH ADVIL [Suspect]
     Indication: COUGH
     Dosage: 100 MG, ONCE
     Route: 048
     Dates: start: 20140403, end: 20140403
  2. JUNIOR STRENGTH ADVIL [Suspect]
     Indication: PYREXIA

REACTIONS (2)
  - Drug administered to patient of inappropriate age [Unknown]
  - Urticaria [Not Recovered/Not Resolved]
